FAERS Safety Report 7107370-4 (Version None)
Quarter: 2010Q4

REPORT INFORMATION
  Report Type: 
  Country: None (occurrence: None)
  Receive Date: 20101112
  Receipt Date: 20101112
  Transmission Date: 20110411
  Serious: Yes (Hospitalization)
  Sender: FDA-Public Use
  Company Number: None

PATIENT
  Sex: Male
  Weight: 60.4 kg

DRUGS (3)
  1. FLUOROURACIL [Suspect]
     Dosage: 2490 MG
     Dates: end: 20101109
  2. BEVACIZUMAB (RHUMAB VEGF) [Suspect]
     Dosage: 320 MG
     Dates: end: 20101109
  3. ELOXATIN [Suspect]
     Dosage: 70 MG
     Dates: end: 20101109

REACTIONS (4)
  - DIARRHOEA [None]
  - HYPOPHAGIA [None]
  - NAUSEA [None]
  - VOMITING [None]
